FAERS Safety Report 22393931 (Version 1)
Quarter: 2023Q2

REPORT INFORMATION
  Report Type: Spontaneous
  Country: FR (occurrence: FR)
  Receive Date: 20230601
  Receipt Date: 20230601
  Transmission Date: 20230721
  Serious: No
  Sender: FDA-Public Use
  Company Number: None

PATIENT
  Age: 72 Year
  Sex: Female

DRUGS (1)
  1. PAXLOVID [Suspect]
     Active Substance: NIRMATRELVIR\RITONAVIR
     Indication: COVID-19
     Dosage: [PF-07321332 150MG]/[RITONAVIR 100 MG]; 1X/DAY
     Route: 048
     Dates: start: 20230210, end: 20230303

REACTIONS (7)
  - Memory impairment [Recovering/Resolving]
  - Abdominal pain [Recovered/Resolved]
  - Headache [Recovered/Resolved]
  - Wrong product administered [Recovered/Resolved]
  - Incorrect dose administered [Unknown]
  - Incorrect product administration duration [Unknown]
  - Off label use [Unknown]

NARRATIVE: CASE EVENT DATE: 20230210
